FAERS Safety Report 10974602 (Version 1)
Quarter: 2015Q2

REPORT INFORMATION
  Report Type: Spontaneous
  Country: GB (occurrence: GB)
  Receive Date: 20150401
  Receipt Date: 20150401
  Transmission Date: 20150821
  Serious: Yes (Hospitalization)
  Sender: FDA-Public Use
  Company Number: GB-WATSON-2015-06673

PATIENT
  Age: 88 Year
  Sex: Male

DRUGS (7)
  1. LANSOPRAZOLE (UNKNOWN) [Suspect]
     Active Substance: LANSOPRAZOLE
     Indication: PRODUCT USED FOR UNKNOWN INDICATION
     Dosage: 30 MG, DAILY
     Route: 048
     Dates: end: 20121227
  2. TRIMETHOPRIM (UNKNOWN) [Suspect]
     Active Substance: TRIMETHOPRIM
     Indication: PRODUCT USED FOR UNKNOWN INDICATION
     Dosage: 200 MG, BID
     Route: 048
     Dates: start: 20120821, end: 20120827
  3. TAZOCIN [Suspect]
     Active Substance: PIPERACILLIN SODIUM\TAZOBACTAM SODIUM
     Indication: CHOLANGITIS
     Dosage: 4.5 G, TID
     Route: 042
     Dates: start: 20121210, end: 20121212
  4. CEFALEXIN (UNKNOWN) [Suspect]
     Active Substance: CEPHALEXIN
     Indication: URINARY TRACT INFECTION
     Dosage: 250 MG, TID
     Route: 048
     Dates: start: 20121204
  5. CO-AMOXICLAV [Suspect]
     Active Substance: AMOXICILLIN\CLAVULANIC ACID
     Indication: PNEUMONIA
     Dosage: 625 MG, TID;500MG/125MG
     Route: 048
     Dates: start: 20121213, end: 20121216
  6. ERTAPENEM [Suspect]
     Active Substance: ERTAPENEM
     Indication: CHOLANGITIS
     Dosage: 1 G, DAILY
     Route: 041
     Dates: start: 20121207, end: 20121209
  7. AMOXICILLIN. [Suspect]
     Active Substance: AMOXICILLIN
     Indication: PNEUMONIA
     Dosage: 500 MG, TID; ONLY 2 DOSES GIVEN
     Route: 041
     Dates: start: 20121207

REACTIONS (3)
  - Clostridium test positive [Unknown]
  - Diarrhoea [Unknown]
  - Biliary sepsis [Unknown]

NARRATIVE: CASE EVENT DATE: 20121207
